FAERS Safety Report 10977963 (Version 1)
Quarter: 2015Q2

REPORT INFORMATION
  Report Type: Spontaneous
  Country: US (occurrence: US)
  Receive Date: 20150402
  Receipt Date: 20150402
  Transmission Date: 20150821
  Serious: Yes (Death, Hospitalization, Other)
  Sender: FDA-Public Use
  Company Number: US-CIPLA LTD.-2015US02700

PATIENT

DRUGS (15)
  1. STREPTOZOCIN [Suspect]
     Active Substance: STREPTOZOCIN
     Indication: DISEASE PROGRESSION
     Dosage: UNK
     Dates: start: 201104
  2. CAPECITABINE. [Suspect]
     Active Substance: CAPECITABINE
     Indication: PANCREATIC NEUROENDOCRINE TUMOUR METASTATIC
     Dosage: UNK
     Dates: start: 200403
  3. 5- FLUOROURACIL [Suspect]
     Active Substance: FLUOROURACIL
     Indication: DISEASE PROGRESSION
     Dosage: UNK
     Dates: start: 201104
  4. DOXORUBICIN HYDROCHLORIDE. [Suspect]
     Active Substance: DOXORUBICIN HYDROCHLORIDE
     Indication: DISEASE PROGRESSION
     Dosage: UNK
     Dates: start: 201104
  5. OXALIPLATIN. [Suspect]
     Active Substance: OXALIPLATIN
     Dosage: 50 MG/M2
     Dates: end: 201212
  6. BEVACIZUMAB [Suspect]
     Active Substance: BEVACIZUMAB
     Indication: DISEASE PROGRESSION
  7. GEMCITABINE [Suspect]
     Active Substance: GEMCITABINE\GEMCITABINE HYDROCHLORIDE
     Indication: DISEASE PROGRESSION
     Dosage: 1000 MG/M2
     Dates: start: 201108
  8. EVEROLIMUS [Suspect]
     Active Substance: EVEROLIMUS
     Indication: DISEASE PROGRESSION
     Dosage: UNK
     Dates: start: 201012, end: 201102
  9. ETOPOSIDE. [Suspect]
     Active Substance: ETOPOSIDE
     Dosage: UNK
     Dates: start: 201308
  10. SUNITINIB [Suspect]
     Active Substance: SUNITINIB
     Indication: DISEASE PROGRESSION
  11. OXALIPLATIN. [Suspect]
     Active Substance: OXALIPLATIN
     Indication: DISEASE PROGRESSION
     Dosage: 80 MG/M2, EVERY 2 WEEKS
     Dates: start: 201108
  12. OXALIPLATIN. [Suspect]
     Active Substance: OXALIPLATIN
     Dosage: 60 MG/M2
     Dates: start: 201110
  13. GEMCITABINE [Suspect]
     Active Substance: GEMCITABINE\GEMCITABINE HYDROCHLORIDE
     Dosage: 650 MG/M2
     Dates: start: 201108
  14. TEMOZOLOMIDE. [Suspect]
     Active Substance: TEMOZOLOMIDE
     Indication: PANCREATIC NEUROENDOCRINE TUMOUR METASTATIC
     Dosage: UNK
     Dates: start: 200403
  15. TEMSIROLIMUS [Suspect]
     Active Substance: TEMSIROLIMUS
     Indication: DISEASE PROGRESSION

REACTIONS (11)
  - Disease progression [Fatal]
  - Fatigue [Unknown]
  - Hypoglycaemia [Unknown]
  - Coma [Unknown]
  - Neuropathy peripheral [Unknown]
  - Shock hypoglycaemic [Unknown]
  - Syncope [Unknown]
  - Dizziness [Unknown]
  - Asthenia [Unknown]
  - Thrombocytopenia [Unknown]
  - Mucosal inflammation [Unknown]

NARRATIVE: CASE EVENT DATE: 200806
